FAERS Safety Report 7118048-5 (Version None)
Quarter: 2010Q4

REPORT INFORMATION
  Report Type: 
  Country: None (occurrence: None)
  Receive Date: 20101123
  Receipt Date: 20100609
  Transmission Date: 20110411
  Serious: Yes (Other)
  Sender: FDA-Public Use
  Company Number: US-BAYER-200940750NA

PATIENT
  Age: 25 Year
  Sex: Female
  Weight: 71 kg

DRUGS (12)
  1. YAZ [Suspect]
     Indication: PRODUCT USED FOR UNKNOWN INDICATION
     Dates: start: 20061101, end: 20061201
  2. ANTIBIOTICS [Concomitant]
  3. METRONIDAZOLE [Concomitant]
     Dosage: INTERMITTENTLY
     Dates: start: 20050101, end: 20080101
  4. NORETHINDRONE [Concomitant]
     Dates: start: 20040114
  5. NORETHINDRONE [Concomitant]
     Dates: start: 20031115
  6. NORETHINDRONE [Concomitant]
     Dates: start: 20031009
  7. LOW-OGESTREL [Concomitant]
     Dosage: LOW-OGESTREL 28
     Dates: start: 20020315
  8. SEASONIQUE [Concomitant]
     Dates: start: 20070101
  9. NAPROSYN [Concomitant]
     Dosage: PATIENT WAS PRESCRIBED ON NAPROSYN BY THE PHYSICIAN.
     Route: 065
  10. CLARITIN [Concomitant]
     Dosage: UNIT DOSE: 10 MG
     Route: 065
  11. NIZORAL [Concomitant]
     Dosage: 25 CREAM 30 G
     Route: 065
  12. METROGEL [Concomitant]
     Dosage: QHS
     Route: 067

REACTIONS (6)
  - ABDOMINAL PAIN [None]
  - ABDOMINAL PAIN LOWER [None]
  - ABDOMINAL PAIN UPPER [None]
  - CHOLECYSTITIS [None]
  - NAUSEA [None]
  - VOMITING [None]
